FAERS Safety Report 9016177 (Version 1)
Quarter: 2013Q1

REPORT INFORMATION
  Report Type: Spontaneous
  Country: CA (occurrence: CA)
  Receive Date: 20130116
  Receipt Date: 20130116
  Transmission Date: 20140127
  Serious: Yes (Other)
  Sender: FDA-Public Use
  Company Number: CHPA2013CA000787

PATIENT
  Age: 62 Year
  Sex: Male

DRUGS (1)
  1. NEOCITRAN NIGHTTIME TOTAL SYMPTOM RELIEF [Suspect]
     Indication: INFLUENZA
     Dosage: 1 PACKET, AT NIGHT, PRN
     Route: 048

REACTIONS (1)
  - Diabetes mellitus [Not Recovered/Not Resolved]
